FAERS Safety Report 4389043-4 (Version None)
Quarter: 2004Q2

REPORT INFORMATION
  Report Type: 
  Country: None (occurrence: None)
  Receive Date: 20040628
  Receipt Date: 20040615
  Transmission Date: 20050107
  Serious: Yes (Hospitalization)
  Sender: FDA-Public Use
  Company Number: 2004219161BE

PATIENT
  Age: 53 Year
  Sex: Female

DRUGS (4)
  1. BEXTRA [Suspect]
     Indication: CARPAL TUNNEL SYNDROME
     Dosage: 20 MG, QD, ORAL
     Route: 048
  2. DIOVAN [Concomitant]
  3. GLUCOPHAGE [Concomitant]
  4. HORMONES [Concomitant]

REACTIONS (1)
  - ANGIONEUROTIC OEDEMA [None]
